FAERS Safety Report 4928791-1 (Version None)
Quarter: 2006Q1

REPORT INFORMATION
  Report Type: 
  Country: None (occurrence: None)
  Receive Date: 20060301
  Receipt Date: 20050322
  Transmission Date: 20060701
  Serious: Yes (Hospitalization)
  Sender: FDA-Public Use
  Company Number: JP-BRACCO-BRO-008455

PATIENT
  Age: 72 Year
  Sex: Female

DRUGS (3)
  1. IOPAMIRON [Suspect]
     Indication: COMPUTERISED TOMOGRAM
     Route: 042
     Dates: start: 20050107, end: 20050107
  2. SULFAMETHOXAZOLE + TRIMETHOPRIM [Suspect]
     Dosage: START DATE OCT 2004
     Route: 048
     Dates: end: 20050117
  3. PREDONINE [Concomitant]
     Route: 048
     Dates: start: 20040928

REACTIONS (8)
  - ANAEMIA [None]
  - CARDIAC FAILURE [None]
  - EOSINOPHILIA [None]
  - ERYTHEMA [None]
  - LYMPHOCYTE STIMULATION TEST POSITIVE [None]
  - PANCREATITIS ACUTE [None]
  - PRURITUS GENERALISED [None]
  - TOXIC EPIDERMAL NECROLYSIS [None]
